FAERS Safety Report 19457245 (Version 4)
Quarter: 2021Q4

REPORT INFORMATION
  Report Type: Report from Study
  Country: BR (occurrence: BR)
  Receive Date: 20210624
  Receipt Date: 20211015
  Transmission Date: 20220303
  Serious: Yes (Life-Threatening, Other)
  Sender: FDA-Public Use
  Company Number: NVSC2021BR139752

PATIENT
  Age: 50 Year
  Sex: Female
  Weight: 86 kg

DRUGS (9)
  1. PIQRAY [Suspect]
     Active Substance: ALPELISIB
     Indication: Product used for unknown indication
     Dosage: 1 DF, QD
     Route: 048
     Dates: start: 20210618
  2. PIQRAY [Suspect]
     Active Substance: ALPELISIB
     Dosage: 300 DF
     Route: 065
     Dates: start: 20210814
  3. PIQRAY [Suspect]
     Active Substance: ALPELISIB
     Dosage: UNK
     Route: 065
     Dates: start: 202106, end: 202108
  4. RIBOCICLIB [Concomitant]
     Active Substance: RIBOCICLIB
     Indication: Product used for unknown indication
     Dosage: UNK (KISQALI)
     Route: 065
     Dates: start: 20190726
  5. RIBOCICLIB [Concomitant]
     Active Substance: RIBOCICLIB
     Dosage: UNK
     Route: 065
     Dates: start: 20190726
  6. FEMARA [Concomitant]
     Active Substance: LETROZOLE
     Indication: Menopause
     Dosage: UNK
     Route: 065
     Dates: start: 20190726
  7. ZOLADEX [Concomitant]
     Active Substance: GOSERELIN ACETATE
     Indication: Product used for unknown indication
     Dosage: UNK
     Route: 065
  8. XGEVA [Concomitant]
     Active Substance: DENOSUMAB
     Indication: Product used for unknown indication
     Dosage: UNK
     Route: 065
  9. FASLODEX [Concomitant]
     Active Substance: FULVESTRANT
     Indication: Product used for unknown indication
     Dosage: EVERY 15 DAYS
     Route: 065
     Dates: start: 20210617

REACTIONS (28)
  - Blood pressure increased [Recovered/Resolved]
  - Diabetes mellitus [Recovered/Resolved]
  - Nodule [Unknown]
  - Gene mutation [Unknown]
  - Blood triglycerides increased [Unknown]
  - Breast swelling [Unknown]
  - Breast pain [Unknown]
  - Condition aggravated [Not Recovered/Not Resolved]
  - Blood pressure decreased [Unknown]
  - Tinnitus [Recovered/Resolved]
  - Tinnitus [Recovered/Resolved]
  - Tinnitus [Recovered/Resolved]
  - Swelling [Recovered/Resolved]
  - Ear pain [Unknown]
  - Fatigue [Unknown]
  - Insomnia [Not Recovered/Not Resolved]
  - Vision blurred [Recovered/Resolved]
  - Toothache [Unknown]
  - Blood pressure increased [Unknown]
  - Pruritus [Unknown]
  - Dry skin [Unknown]
  - Blood glucose increased [Recovered/Resolved]
  - Headache [Not Recovered/Not Resolved]
  - Pancreatic disorder [Unknown]
  - Treatment failure [Unknown]
  - Skin mass [Recovered/Resolved]
  - Tachycardia [Unknown]
  - Affective disorder [Unknown]

NARRATIVE: CASE EVENT DATE: 20210601
